FAERS Safety Report 8838702 (Version 1)
Quarter: 2012Q4

REPORT INFORMATION
  Report Type: 
  Country: US (occurrence: US)
  Receive Date: 20121012
  Receipt Date: 20121012
  Transmission Date: 20130627
  Serious: Yes (Hospitalization)
  Sender: FDA-Public Use
  Company Number: US-ASTRAZENECA-2012SE76505

PATIENT
  Age: 48 Year
  Sex: Female
  Weight: 102.1 kg

DRUGS (5)
  1. SEROQUEL [Suspect]
     Indication: BIPOLAR I DISORDER
     Route: 048
     Dates: start: 2002, end: 201005
  2. SEROQUEL [Suspect]
     Indication: BIPOLAR I DISORDER
     Route: 048
     Dates: start: 2002, end: 201005
  3. SEROQUEL [Suspect]
     Indication: BIPOLAR I DISORDER
     Route: 048
     Dates: start: 201005, end: 20121010
  4. SEROQUEL [Suspect]
     Indication: BIPOLAR I DISORDER
     Route: 048
     Dates: start: 20101001
  5. DEPAKOTE [Suspect]
     Indication: BIPOLAR I DISORDER
     Route: 048

REACTIONS (10)
  - Insomnia [Recovered/Resolved]
  - Overdose [Recovered/Resolved]
  - Malaise [Unknown]
  - Headache [Unknown]
  - Nausea [Unknown]
  - Hyperhidrosis [Unknown]
  - Weight increased [Unknown]
  - Somnolence [Unknown]
  - Intentional drug misuse [Unknown]
  - Drug dose omission [Unknown]
